FAERS Safety Report 17000815 (Version 1)
Quarter: 2019Q4

REPORT INFORMATION
  Report Type: Report from Study
  Country: US (occurrence: US)
  Receive Date: 20191106
  Receipt Date: 20191106
  Transmission Date: 20200122
  Serious: Yes (Death)
  Sender: FDA-Public Use
  Company Number: US-PFIZER INC-2019473567

PATIENT

DRUGS (2)
  1. PACLITAXEL. [Suspect]
     Active Substance: PACLITAXEL
     Indication: SMALL CELL LUNG CANCER
     Dosage: 60 MG/M2, CYCLIC (ON DAYS 1, 8, AND 15)
     Route: 042
  2. ALISERTIB [Suspect]
     Active Substance: ALISERTIB
     Indication: SMALL CELL LUNG CANCER
     Dosage: 40 MG, 2X/DAY (FOR 3 WEEKS ON DAYS 1-3, 8-10 AND 15-17)
     Route: 048

REACTIONS (1)
  - Febrile neutropenia [Fatal]
